FAERS Safety Report 10424097 (Version 1)
Quarter: 2014Q3

REPORT INFORMATION
  Report Type: Spontaneous
  Country: US (occurrence: None)
  Receive Date: 20140722
  Receipt Date: 20140722
  Transmission Date: 20150326
  Serious: No
  Sender: FDA-Public Use
  Company Number: AEGR000463

PATIENT
  Age: 71 Year
  Sex: Female
  Weight: 60.3 kg

DRUGS (8)
  1. CRESTOR [Concomitant]
     Active Substance: ROSUVASTATIN CALCIUM
  2. JUXTAPID [Suspect]
     Active Substance: LOMITAPIDE MESYLATE
     Indication: HYPERCHOLESTEROLAEMIA
     Dates: start: 201402
  3. ZETIA [Concomitant]
     Active Substance: EZETIMIBE
  4. COREG [Concomitant]
     Active Substance: CARVEDILOL
  5. PLAVIX (CLOPIDOGREL BISULFATE) [Concomitant]
  6. VITAMIN D (COLECALCIFEROL) [Concomitant]
  7. SYNTHROID (LEVOTHYROXINE SODIIUM) [Concomitant]
  8. PRILOSEC (OMEPRAZOLE) [Concomitant]
     Active Substance: OMEPRAZOLE MAGNESIUM

REACTIONS (2)
  - Off label use [None]
  - Abdominal discomfort [None]

NARRATIVE: CASE EVENT DATE: 2014
